FAERS Safety Report 13461585 (Version 1)
Quarter: 2017Q2

REPORT INFORMATION
  Report Type: Spontaneous
  Country: US (occurrence: US)
  Receive Date: 20170420
  Receipt Date: 20170420
  Transmission Date: 20170830
  Serious: No
  Sender: FDA-Public Use
  Company Number: US-BAYER-2017-075581

PATIENT
  Age: 39 Year
  Sex: Female
  Weight: 61.22 kg

DRUGS (3)
  1. BIOTIN [Concomitant]
     Active Substance: BIOTIN
     Dosage: UNK
  2. CLARITIN [Suspect]
     Active Substance: LORATADINE
     Indication: HYPERSENSITIVITY
     Dosage: 1 DF, UNK
     Route: 048
     Dates: start: 20170418, end: 20170418
  3. CLARITIN [Suspect]
     Active Substance: LORATADINE
     Indication: VIRAL UPPER RESPIRATORY TRACT INFECTION

REACTIONS (4)
  - Sinus pain [Unknown]
  - Nasal oedema [Unknown]
  - Paranasal sinus discomfort [Unknown]
  - Drug ineffective [Unknown]
